FAERS Safety Report 13988625 (Version 3)
Quarter: 2017Q3

REPORT INFORMATION
  Report Type: Spontaneous
  Country: CN (occurrence: CN)
  Receive Date: 20170919
  Receipt Date: 20170929
  Transmission Date: 20171128
  Serious: Yes (Other)
  Sender: FDA-Public Use
  Company Number: CN-009507513-1709CHN009318

PATIENT
  Sex: Female

DRUGS (1)
  1. MARVELON [Suspect]
     Active Substance: DESOGESTREL\ETHINYL ESTRADIOL
     Indication: PRODUCT USED FOR UNKNOWN INDICATION
     Route: 048

REACTIONS (15)
  - Pelvic inflammatory disease [Not Recovered/Not Resolved]
  - Anxiety [Not Recovered/Not Resolved]
  - Abortion [Unknown]
  - Unintended pregnancy [Unknown]
  - Skin discolouration [Unknown]
  - Depression [Not Recovered/Not Resolved]
  - Acne [Unknown]
  - Alopecia [Not Recovered/Not Resolved]
  - General physical health deterioration [Not Recovered/Not Resolved]
  - Maternal exposure during pregnancy [Unknown]
  - Insomnia [Not Recovered/Not Resolved]
  - Uterine leiomyoma [Not Recovered/Not Resolved]
  - Palpitations [Not Recovered/Not Resolved]
  - Menopause [Not Recovered/Not Resolved]
  - Endocrine disorder [Not Recovered/Not Resolved]
